FAERS Safety Report 21233765 (Version 6)
Quarter: 2022Q3

REPORT INFORMATION
  Report Type: Report from Study
  Country: CN (occurrence: CN)
  Receive Date: 20220819
  Receipt Date: 20220905
  Transmission Date: 20221027
  Serious: Yes (Other)
  Sender: FDA-Public Use
  Company Number: CN-BoehringerIngelheim-2022-BI-175373

PATIENT
  Age: 49 Year
  Sex: Male
  Weight: 75 kg

DRUGS (5)
  1. TENECTEPLASE [Suspect]
     Active Substance: TENECTEPLASE
     Indication: Ischaemic stroke
     Route: 042
     Dates: start: 20200520
  2. BECLOMETHASONE DIPROPIONATE [Concomitant]
     Active Substance: BECLOMETHASONE DIPROPIONATE
     Indication: Productive cough
     Route: 055
     Dates: start: 20220524, end: 20220531
  3. PIRACETAM [Concomitant]
     Active Substance: PIRACETAM
     Indication: Drug therapy
     Route: 042
     Dates: start: 20220520, end: 20220529
  4. EDARAVONE [Concomitant]
     Active Substance: EDARAVONE
     Indication: Drug therapy
     Route: 042
     Dates: start: 20220520, end: 20220601
  5. PIPERACILLIN SODIUM\TAZOBACTAM SODIUM [Concomitant]
     Active Substance: PIPERACILLIN SODIUM\TAZOBACTAM SODIUM
     Indication: Infection
     Route: 042
     Dates: start: 20220521, end: 20220525

REACTIONS (3)
  - Pneumonia aspiration [Not Recovered/Not Resolved]
  - Coma [Recovered/Resolved with Sequelae]
  - Brain oedema [Recovered/Resolved]

NARRATIVE: CASE EVENT DATE: 20220521
